FAERS Safety Report 9630726 (Version 1)
Quarter: 2013Q4

REPORT INFORMATION
  Report Type: Spontaneous
  Country: US (occurrence: None)
  Receive Date: 20131016
  Receipt Date: 20131016
  Transmission Date: 20140711
  Serious: Yes (Death)
  Sender: FDA-Public Use
  Company Number: 1713747-2013-99960

PATIENT
  Age: 68 Year
  Sex: Male
  Weight: 110 kg

DRUGS (2)
  1. DELFLEX [Suspect]
     Indication: RENAL FAILURE CHRONIC
     Dosage: 2.5% DEXTROSE, 5CYCLES
     Dates: start: 20131009
  2. LIBERTY CYCLER AND LIBERTY CYCLER TUBING [Concomitant]

REACTIONS (1)
  - Unresponsive to stimuli [None]
